FAERS Safety Report 16278236 (Version 1)
Quarter: 2019Q2

REPORT INFORMATION
  Report Type: Report from Study
  Country: US (occurrence: US)
  Receive Date: 20190506
  Receipt Date: 20190506
  Transmission Date: 20190711
  Serious: Yes (Hospitalization, Other)
  Sender: FDA-Public Use
  Company Number: US-PFIZER INC-2019188653

PATIENT
  Age: 48 Year
  Sex: Female
  Weight: 66 kg

DRUGS (4)
  1. VINBLASTINE [Suspect]
     Active Substance: VINBLASTINE
     Indication: HODGKIN^S DISEASE
     Dosage: 10 MG (6 MG/M2, Q CYCLE), CYCLIC
     Route: 042
     Dates: start: 20190208, end: 20190405
  2. BRENTUXIMAB VEDOTIN RECOMBINANT [Suspect]
     Active Substance: BRENTUXIMAB VEDOTIN
     Indication: HODGKIN^S DISEASE
     Dosage: 80 MG (1.2 MG/KG, Q CYCLE), CYCLIC
     Route: 042
     Dates: start: 20190208, end: 20190405
  3. DACARBAZINE. [Suspect]
     Active Substance: DACARBAZINE
     Indication: HODGKIN^S DISEASE
     Dosage: 650 MG (375 MG/M2, Q CYCLE), CYCLIC
     Route: 042
     Dates: start: 20190208, end: 20190405
  4. DOXORUBICIN HCL [Suspect]
     Active Substance: DOXORUBICIN HYDROCHLORIDE
     Indication: HODGKIN^S DISEASE
     Dosage: 43 MG (25 MG/M2, Q CYCLE), CYCLIC
     Route: 042
     Dates: start: 20190208, end: 20190405

REACTIONS (1)
  - Febrile neutropenia [Not Recovered/Not Resolved]

NARRATIVE: CASE EVENT DATE: 20190414
